FAERS Safety Report 7230877-6 (Version None)
Quarter: 2011Q1

REPORT INFORMATION
  Report Type: 
  Country: None (occurrence: None)
  Receive Date: 20110118
  Receipt Date: 20110107
  Transmission Date: 20110831
  Serious: Yes (Hospitalization, Other)
  Sender: FDA-Public Use
  Company Number: IE-MEDIMMUNE-MEDI-0012219

PATIENT
  Sex: Male
  Weight: 5.92 kg

DRUGS (3)
  1. FERROUS SULFATE [Concomitant]
  2. SYNAGIS [Suspect]
     Route: 030
     Dates: start: 20101021, end: 20101021
  3. KAPSOVIT [Concomitant]

REACTIONS (3)
  - INHALATION THERAPY [None]
  - BRONCHITIS [None]
  - PNEUMONIA [None]
